FAERS Safety Report 4853012-8 (Version None)
Quarter: 2005Q4

REPORT INFORMATION
  Report Type: 
  Country: None (occurrence: None)
  Receive Date: 20051212
  Receipt Date: 20051122
  Transmission Date: 20060501
  Serious: Yes (Other)
  Sender: FDA-Public Use
  Company Number: US_0501110117

PATIENT
  Age: 28 Year
  Sex: Female

DRUGS (4)
  1. ZYPREXA [Suspect]
  2. VALIUM [Concomitant]
  3. PAXIL [Concomitant]
  4. KLONOPIN [Concomitant]

REACTIONS (7)
  - CAESAREAN SECTION [None]
  - DRUG EXPOSURE DURING PREGNANCY [None]
  - GESTATIONAL DIABETES [None]
  - PARANOIA [None]
  - PRE-ECLAMPSIA [None]
  - PREGNANCY [None]
  - REFUSAL OF EXAMINATION [None]
